FAERS Safety Report 10173636 (Version 1)
Quarter: 2014Q2

REPORT INFORMATION
  Report Type: Spontaneous
  Country: US (occurrence: None)
  Receive Date: 20140425
  Receipt Date: 20140425
  Transmission Date: 20141212
  Serious: No
  Sender: FDA-Public Use
  Company Number: AP356-00569-SPO-US

PATIENT
  Age: 56 Year
  Sex: Female
  Weight: 84.3 kg

DRUGS (3)
  1. BELVIQ (LORCASERIN HYDROCHLORIDE) [Suspect]
     Indication: WEIGHT DECREASED
     Route: 048
     Dates: start: 201312, end: 20140325
  2. SIMVASTATIN [Concomitant]
  3. LORAZEPAM (LORAZEPAM) [Concomitant]

REACTIONS (7)
  - Abdominal pain upper [None]
  - Bone pain [None]
  - Heart rate increased [None]
  - Headache [None]
  - Dry mouth [None]
  - Diarrhoea [None]
  - Musculoskeletal pain [None]
